FAERS Safety Report 20541215 (Version 1)
Quarter: 2022Q1

REPORT INFORMATION
  Report Type: Spontaneous
  Country: US (occurrence: US)
  Receive Date: 20220302
  Receipt Date: 20220302
  Transmission Date: 20220423
  Serious: Yes (Death, Hospitalization)
  Sender: FDA-Public Use
  Company Number: US-BAYER-2021A231344

PATIENT
  Age: 77 Year
  Sex: Male

DRUGS (1)
  1. RIVAROXABAN [Suspect]
     Active Substance: RIVAROXABAN
     Indication: Atrial fibrillation
     Route: 048

REACTIONS (5)
  - Gastrointestinal haemorrhage [Fatal]
  - Septic shock [Fatal]
  - Cerebral artery embolism [Fatal]
  - Haematemesis [Unknown]
  - Cerebral haemorrhage [Unknown]
